FAERS Safety Report 25170967 (Version 2)
Quarter: 2025Q2

REPORT INFORMATION
  Report Type: Spontaneous
  Country: US (occurrence: US)
  Receive Date: 20250408
  Receipt Date: 20250424
  Transmission Date: 20250717
  Serious: Yes (Hospitalization, Other)
  Sender: CSL BEHRING
  Company Number: US-BEH-2025201295

PATIENT
  Age: 41 Year
  Sex: Female

DRUGS (3)
  1. PRIVIGEN [Suspect]
     Active Substance: HUMAN IMMUNOGLOBULIN G
     Indication: Immunodeficiency common variable
     Dosage: 20 G, Q3W
     Route: 042
     Dates: start: 202201
  2. AJOVY [Concomitant]
     Active Substance: FREMANEZUMAB-VFRM
  3. DROXIDOPA [Concomitant]
     Active Substance: DROXIDOPA

REACTIONS (2)
  - Liver disorder [Unknown]
  - Blood potassium abnormal [Unknown]

NARRATIVE: CASE EVENT DATE: 20250321
